FAERS Safety Report 24965535 (Version 1)
Quarter: 2025Q1

REPORT INFORMATION
  Report Type: Spontaneous
  Country: US (occurrence: None)
  Receive Date: 20250212
  Receipt Date: 20250212
  Transmission Date: 20250409
  Serious: Yes (Other)
  Sender: FDA-CTU
  Company Number: None

PATIENT
  Age: 78 Year
  Sex: Male
  Weight: 69.75 kg

DRUGS (2)
  1. BUPIVACAINE\LIDOCAINE\TRIAMCINOLONE ACETONIDE [Suspect]
     Active Substance: BUPIVACAINE\LIDOCAINE\TRIAMCINOLONE ACETONIDE
     Indication: Arthralgia
     Dates: start: 20241016, end: 20241204
  2. GABAPENTIN [Suspect]
     Active Substance: GABAPENTIN

REACTIONS (1)
  - Tendon rupture [None]

NARRATIVE: CASE EVENT DATE: 20241216
